FAERS Safety Report 7161722-5 (Version None)
Quarter: 2010Q4

REPORT INFORMATION
  Report Type: 
  Country: None (occurrence: None)
  Receive Date: 20101201
  Receipt Date: 20101112
  Transmission Date: 20110411
  Serious: Yes (Other)
  Sender: FDA-Public Use
  Company Number: AUR-APL-2010-02829

PATIENT
  Age: 69 Year
  Sex: Male

DRUGS (15)
  1. SIMVASTATIN [Suspect]
  2. ATENOLOL [Suspect]
     Dosage: 25MG - DAILY -
  3. CANDESARTAN [Suspect]
     Dosage: 8MG - DAILY -
  4. FLURBIPROFEN [Suspect]
     Dosage: 50MG -BID -
  5. FOLIC ACID [Suspect]
     Dosage: 15MG - WEEKLY -
  6. ISOSORBIDE MONONITRATE [Suspect]
     Dosage: 39MG - BID -
  7. LANSOPRAZOLE [Suspect]
     Dosage: 30MG - DAILY -
  8. METHOTREXATE [Suspect]
     Dosage: 17.5MG - DAILY -
  9. NICORANDIL [Suspect]
     Dosage: 10MG - DAILY -
  10. PRAVASTATIN [Suspect]
     Dosage: 20MG - DAILY -
  11. ASPIRIN [Concomitant]
  12. CALCIPOTRIOL [Concomitant]
  13. GUAR HYDROXYPROPYL TRIMONIUM [Concomitant]
  14. ... [Concomitant]
  15. ... [Concomitant]

REACTIONS (1)
  - ABNORMAL DREAMS [None]
